FAERS Safety Report 8178543-7 (Version None)
Quarter: 2012Q1

REPORT INFORMATION
  Report Type: 
  Country: None (occurrence: None)
  Receive Date: 20120301
  Receipt Date: 20120221
  Transmission Date: 20120608
  Serious: Yes (Hospitalization)
  Sender: FDA-Public Use
  Company Number: US-ABBOTT-11P-163-0873641-00

PATIENT
  Sex: Female
  Weight: 83.99 kg

DRUGS (13)
  1. KLONOPIN [Concomitant]
     Indication: ANXIETY DISORDER
  2. HUMIRA [Suspect]
     Indication: CROHN'S DISEASE
     Route: 058
     Dates: start: 20110901, end: 20111206
  3. HUMIRA [Suspect]
     Indication: UVEITIS
  4. KLONOPIN [Concomitant]
     Indication: AGORAPHOBIA
  5. COMPAZINE [Concomitant]
     Indication: NAUSEA
     Dosage: AS NEEDED
  6. COMPAZINE [Concomitant]
     Indication: VOMITING
  7. BACLOFEN [Suspect]
     Indication: OESOPHAGEAL CANDIDIASIS
     Dates: start: 20111201
  8. ABILIFY [Concomitant]
     Indication: BIPOLAR DISORDER
  9. ULTRAM [Concomitant]
     Indication: PAIN
  10. ULTRAM [Concomitant]
     Indication: PAIN MANAGEMENT
     Dosage: AS NEEDED
  11. HYDROCODONE BITARTRATE [Concomitant]
     Indication: PRODUCT USED FOR UNKNOWN INDICATION
     Dosage: 5/500MG AS NEEDED
  12. LYRICA [Concomitant]
     Indication: PAIN
  13. SONATA [Concomitant]
     Indication: PRODUCT USED FOR UNKNOWN INDICATION
     Dosage: AT BEDTIME

REACTIONS (20)
  - NAUSEA [None]
  - MOBILITY DECREASED [None]
  - OEDEMA PERIPHERAL [None]
  - OESOPHAGITIS [None]
  - LETHARGY [None]
  - OESOPHAGEAL DISORDER [None]
  - OESOPHAGEAL MASS [None]
  - EROSIVE OESOPHAGITIS [None]
  - ABDOMINAL PAIN [None]
  - MUSCLE SPASMS [None]
  - RECTAL HAEMORRHAGE [None]
  - BLOOD GLUCOSE INCREASED [None]
  - TACHYCARDIA [None]
  - THROMBOSIS [None]
  - OESOPHAGEAL CANDIDIASIS [None]
  - VOMITING [None]
  - DYSPHAGIA [None]
  - DIARRHOEA [None]
  - DYSTONIA [None]
  - MUSCLE TWITCHING [None]
